FAERS Safety Report 6506012-6 (Version None)
Quarter: 2009Q4

REPORT INFORMATION
  Report Type: 
  Country: None (occurrence: None)
  Receive Date: 20091218
  Receipt Date: 20091207
  Transmission Date: 20100525
  Serious: Yes (Other)
  Sender: FDA-Public Use
  Company Number: GB-B.I. PHARMACEUTICALS,INC./RIDGEFIELD-2009-BP-14529YA

PATIENT
  Age: 69 Year
  Sex: Male
  Weight: 79 kg

DRUGS (10)
  1. TAMSULOSIN HCL [Suspect]
     Indication: BENIGN PROSTATIC HYPERPLASIA
     Route: 048
     Dates: start: 20091109, end: 20091125
  2. ADCAL D3 (CALCIUM CARBONATE, COLECALCIFEROL) [Concomitant]
     Dates: start: 20070104
  3. ASACOL [Concomitant]
     Dates: start: 20051207
  4. ASPIRIN [Concomitant]
     Dates: start: 20080417
  5. BISOPROLOL FUMARATE [Concomitant]
     Dates: start: 20090902
  6. FUCIDIN H (FUSIDIC ACID) [Concomitant]
     Dates: end: 20090915
  7. GLICLAZIDE (GLICLAZIDE) [Concomitant]
     Dates: start: 20090226
  8. OMEPRAZOLE [Concomitant]
     Dates: start: 20070611
  9. SIMVASTATIN [Concomitant]
     Dates: start: 20020222
  10. CONTOUR (ESOMEPRAZOLE MAGNESIUM) [Concomitant]
     Dates: start: 20090312

REACTIONS (1)
  - ARTHRALGIA [None]
